FAERS Safety Report 10262923 (Version 1)
Quarter: 2014Q2

REPORT INFORMATION
  Report Type: Report from Study
  Country: US (occurrence: US)
  Receive Date: 20140626
  Receipt Date: 20140626
  Transmission Date: 20141212
  Serious: Yes (Other)
  Sender: FDA-Public Use
  Company Number: US-MYLANLABS-2013S1022913

PATIENT
  Age: 54 Year
  Sex: Male

DRUGS (5)
  1. CLOZAPINE TABLETS [Suspect]
     Indication: SCHIZOPHRENIA
     Dosage: 200MG QAM, 300MG QPM
     Route: 048
     Dates: start: 201304, end: 20131008
  2. CLOZAPINE TABLETS [Suspect]
     Indication: SCHIZOPHRENIA
     Dosage: 200MG QAM, 300MG QPM
     Route: 048
     Dates: start: 201304, end: 20131008
  3. COGENTIN [Concomitant]
     Route: 048
  4. DIVALPROEX [Concomitant]
     Route: 048
  5. PREMARIN [Concomitant]
     Route: 048

REACTIONS (1)
  - Granulocytopenia [Recovered/Resolved]
